FAERS Safety Report 21719779 (Version 1)
Quarter: 2022Q4

REPORT INFORMATION
  Report Type: Report from Study
  Country: US (occurrence: US)
  Receive Date: 20221213
  Receipt Date: 20221213
  Transmission Date: 20230112
  Serious: No
  Sender: FDA-Public Use
  Company Number: US-ABBVIE-22K-163-4462454-00

PATIENT
  Sex: Male

DRUGS (3)
  1. SKYRIZI [Suspect]
     Active Substance: RISANKIZUMAB-RZAA
     Indication: Psoriasis
     Dosage: FIRST ADMIN DATE 22 APR 2022 AND LAST ADMIN DATE: APR 2022
     Route: 058
  2. SKYRIZI [Suspect]
     Active Substance: RISANKIZUMAB-RZAA
     Dosage: FIRST ADMIN DATE 30 APR 2022 AND LAST ADMIN DATE: 2022
     Route: 058
  3. SKYRIZI [Suspect]
     Active Substance: RISANKIZUMAB-RZAA
     Dosage: FIRST ADMIN DATE: 29 JUN 2022
     Route: 058

REACTIONS (9)
  - Seasonal allergy [Unknown]
  - Dry skin [Unknown]
  - Unevaluable event [Unknown]
  - Therapeutic response shortened [Unknown]
  - Scratch [Unknown]
  - Sinus disorder [Unknown]
  - Rash [Unknown]
  - Hyperaesthesia [Unknown]
  - Erythema [Unknown]

NARRATIVE: CASE EVENT DATE: 20220101
